FAERS Safety Report 4387626-9 (Version None)
Quarter: 2004Q2

REPORT INFORMATION
  Report Type: 
  Country: None (occurrence: None)
  Receive Date: 20040630
  Receipt Date: 20040520
  Transmission Date: 20050107
  Serious: No
  Sender: FDA-Public Use
  Company Number: US-GLAXOSMITHKLINE-A0511635A

PATIENT
  Age: 80 Year
  Sex: Female

DRUGS (3)
  1. ADVAIR HFA [Suspect]
     Indication: ASTHMA
     Route: 055
     Dates: start: 20040201
  2. ACTONEL [Concomitant]
  3. ISOPTIN TAB [Concomitant]

REACTIONS (1)
  - PALPITATIONS [None]
